FAERS Safety Report 9015994 (Version 1)
Quarter: 2013Q1

REPORT INFORMATION
  Report Type: Spontaneous
  Country: US (occurrence: US)
  Receive Date: 20130116
  Receipt Date: 20130116
  Transmission Date: 20140127
  Serious: Yes (Other)
  Sender: FDA-Public Use
  Company Number: US-BAYER-2013-004563

PATIENT
  Age: 72 Year
  Sex: Male
  Weight: 105 kg

DRUGS (6)
  1. ALEVE CAPLET/TABLET,MIDOL EXTENDED RELIEF CAPLET [Suspect]
     Dosage: 2 DF, QID
     Route: 048
     Dates: start: 20130108, end: 20130109
  2. OXYBUTYNIN CHLORIDE [Concomitant]
  3. LOFIBRA [Concomitant]
  4. LISINOPRIL [Concomitant]
  5. ZETIA [Concomitant]
  6. WARFARIN [Interacting]

REACTIONS (3)
  - Blood urine present [Not Recovered/Not Resolved]
  - Overdose [None]
  - Potentiating drug interaction [None]
